FAERS Safety Report 11539419 (Version 1)
Quarter: 2015Q3

REPORT INFORMATION
  Report Type: Spontaneous
  Country: US (occurrence: US)
  Receive Date: 20150923
  Receipt Date: 20150923
  Transmission Date: 20151125
  Serious: No
  Sender: FDA-Public Use
  Company Number: US-TEVA-518117USA

PATIENT
  Sex: Female

DRUGS (7)
  1. LEVOXYL [Concomitant]
     Active Substance: LEVOTHYROXINE SODIUM
  2. NAPROXEN. [Concomitant]
     Active Substance: NAPROXEN
  3. HYDROXYCHLOROQUINE [Suspect]
     Active Substance: HYDROXYCHLOROQUINE
     Route: 065
  4. XELJANZ [Suspect]
     Active Substance: TOFACITINIB CITRATE
     Dosage: 10 MILLIGRAM DAILY;
     Route: 048
  5. LIPITOR [Concomitant]
     Active Substance: ATORVASTATIN CALCIUM
  6. VITAMIN B12 [Concomitant]
     Active Substance: CYANOCOBALAMIN
  7. OMEPRAZOLE. [Concomitant]
     Active Substance: OMEPRAZOLE

REACTIONS (1)
  - Abdominal discomfort [Recovered/Resolved]
